FAERS Safety Report 9439424 (Version 2)
Quarter: 2013Q3

REPORT INFORMATION
  Report Type: Report from Study
  Country: PL (occurrence: PL)
  Receive Date: 20130805
  Receipt Date: 20130926
  Transmission Date: 20140515
  Serious: Yes (Hospitalization)
  Sender: FDA-Public Use
  Company Number: PL-BIOGENIDEC-2013BI069288

PATIENT
  Age: 24 Year
  Sex: Female
  Weight: 105 kg

DRUGS (7)
  1. BG00012 [Suspect]
     Indication: MULTIPLE SCLEROSIS
     Route: 048
     Dates: start: 20110701
  2. VITAMIN E [Concomitant]
     Indication: SUPPLEMENTATION THERAPY
     Route: 048
     Dates: start: 20090716
  3. LECITHIN [Concomitant]
     Indication: SUPPLEMENTATION THERAPY
     Route: 048
     Dates: start: 20090716
  4. TANAKAN [Concomitant]
     Indication: SUPPLEMENTATION THERAPY
     Route: 048
     Dates: start: 20090716
  5. ESSENTIALE FORTE [Concomitant]
     Indication: ALANINE AMINOTRANSFERASE INCREASED
     Route: 048
     Dates: start: 20090903
  6. KETONAL [Concomitant]
     Indication: PAIN IN EXTREMITY
     Route: 048
     Dates: start: 20120302
  7. BACLOFEN [Concomitant]
     Indication: PAIN IN EXTREMITY
     Route: 048
     Dates: start: 20120302

REACTIONS (1)
  - Cholelithiasis [Recovered/Resolved]
